FAERS Safety Report 9526096 (Version 1)
Quarter: 2013Q3

REPORT INFORMATION
  Report Type: Spontaneous
  Country: ES (occurrence: ES)
  Receive Date: 20130916
  Receipt Date: 20130916
  Transmission Date: 20140515
  Serious: Yes (Hospitalization)
  Sender: FDA-Public Use
  Company Number: ES-MERCK-1309ESP005492

PATIENT
  Age: 89 Year
  Sex: Female

DRUGS (7)
  1. REXER FLAS [Suspect]
     Indication: DEPRESSION
     Dosage: 0-0-1
     Route: 048
     Dates: start: 20110923, end: 20121205
  2. AMERIDE [Interacting]
     Indication: HYPERTENSION
     Dosage: 1-0-0
     Route: 048
     Dates: start: 20121103, end: 20121205
  3. LEXATIN [Concomitant]
     Indication: INSOMNIA
     Dosage: 0-0-1
     Route: 048
     Dates: start: 20110923
  4. OMEPRAZOLE [Concomitant]
     Indication: PROPHYLAXIS AGAINST GASTROINTESTINAL ULCER
     Dosage: 1-0-0
     Route: 048
     Dates: start: 20110531
  5. SERC (BETAHISTINE HYDROCHLORIDE) [Concomitant]
     Indication: MYOKYMIA
     Dosage: 1-1-1
     Route: 048
     Dates: start: 20110923
  6. CRESTOR [Concomitant]
     Indication: DYSLIPIDAEMIA
     Dosage: 0-0-1
     Route: 048
     Dates: start: 20100302
  7. ESCITALOPRAM [Concomitant]
     Indication: DEPRESSION
     Dosage: 1-0-0
     Route: 048
     Dates: start: 20121119

REACTIONS (2)
  - Hyponatraemic encephalopathy [Recovered/Resolved]
  - Hyponatraemia [Recovered/Resolved]
